FAERS Safety Report 4332961-3 (Version None)
Quarter: 2004Q2

REPORT INFORMATION
  Report Type: 
  Country: None (occurrence: None)
  Receive Date: 20040405
  Receipt Date: 20040405
  Transmission Date: 20050107
  Serious: Yes (Other)
  Sender: FDA-Public Use
  Company Number: None

PATIENT
  Age: 43 Year
  Sex: Female
  Weight: 52.1637 kg

DRUGS (1)
  1. PROPHYLAXIS PASTE WATERPIK TECHNOLOGIES [Suspect]

REACTIONS (5)
  - GINGIVAL BLEEDING [None]
  - GINGIVAL PAIN [None]
  - GLOSSODYNIA [None]
  - SENSITIVITY OF TEETH [None]
  - TONGUE DISCOLOURATION [None]
